FAERS Safety Report 4914300-X (Version None)
Quarter: 2006Q1

REPORT INFORMATION
  Report Type: 
  Country: None (occurrence: None)
  Receive Date: 20060216
  Receipt Date: 20060208
  Transmission Date: 20060701
  Serious: Yes (Hospitalization)
  Sender: FDA-Public Use
  Company Number: FR-ABBOTT-06P-056-0324702-00

PATIENT
  Age: 19 Year
  Sex: Female
  Weight: 48 kg

DRUGS (10)
  1. HUMIRA [Suspect]
     Indication: CROHN'S DISEASE
     Route: 058
     Dates: start: 20050613, end: 20051005
  2. AZATHIOPRINE [Concomitant]
     Indication: DRUG USE FOR UNKNOWN INDICATION
  3. ACETYLSALICYLIC ACID SRT [Concomitant]
     Indication: DRUG USE FOR UNKNOWN INDICATION
  4. INFLIXIMAB [Concomitant]
     Indication: DRUG USE FOR UNKNOWN INDICATION
     Dates: start: 20050331, end: 20050401
  5. INFLIXIMAB [Concomitant]
     Dates: start: 20020301
  6. METHOTREXATE [Concomitant]
     Indication: DRUG USE FOR UNKNOWN INDICATION
     Dates: end: 20050726
  7. VALACYCLOVIR HCL [Concomitant]
     Indication: HERPES VIRUS INFECTION
     Dates: start: 20050127
  8. SALBUTAMOL [Concomitant]
     Indication: ASTHMA
     Dates: start: 20000101
  9. DESLORATIDINE [Concomitant]
     Indication: ASTHMA
     Dates: start: 20000101
  10. AMOXICILLIN [Concomitant]
     Indication: DRUG USE FOR UNKNOWN INDICATION
     Dates: start: 20051105

REACTIONS (9)
  - ABDOMINAL PAIN UPPER [None]
  - ARTHRALGIA [None]
  - CHILLS [None]
  - DIARRHOEA [None]
  - HAEMOPTYSIS [None]
  - LYMPHADENOPATHY [None]
  - MYALGIA [None]
  - PERITONITIS [None]
  - TUBERCULOSIS [None]
